FAERS Safety Report 10219357 (Version 5)
Quarter: 2014Q4

REPORT INFORMATION
  Report Type: Report from Study
  Country: US (occurrence: US)
  Receive Date: 20140605
  Receipt Date: 20141106
  Transmission Date: 20150528
  Serious: Yes (Hospitalization)
  Sender: FDA-Public Use
  Company Number: US-ACTELION-A-US2014-099765

PATIENT
  Age: 44 Year
  Sex: Female

DRUGS (2)
  1. MACITENTAN [Suspect]
     Active Substance: MACITENTAN
     Indication: PULMONARY ARTERIAL HYPERTENSION
     Dosage: 10 MG, QD
     Route: 048
     Dates: start: 20140103
  2. REMODULIN [Concomitant]
     Active Substance: TREPROSTINIL

REACTIONS (11)
  - Epistaxis [Not Recovered/Not Resolved]
  - Blood iron decreased [Not Recovered/Not Resolved]
  - Anaemia [Not Recovered/Not Resolved]
  - Condition aggravated [Unknown]
  - Right ventricular failure [Not Recovered/Not Resolved]
  - Condition aggravated [Recovering/Resolving]
  - Fluid retention [Not Recovered/Not Resolved]
  - Pulmonary arterial hypertension [Unknown]
  - Blood count abnormal [Not Recovered/Not Resolved]
  - Transfusion [Not Recovered/Not Resolved]
  - Pulmonary hypertension [Unknown]

NARRATIVE: CASE EVENT DATE: 20140520
